FAERS Safety Report 11190184 (Version 1)
Quarter: 2015Q2

REPORT INFORMATION
  Report Type: Spontaneous
  Country: US (occurrence: None)
  Receive Date: 20150602
  Receipt Date: 20150602
  Transmission Date: 20150821
  Serious: Yes (Hospitalization)
  Sender: FDA-Public Use
  Company Number: 2015030011

PATIENT
  Sex: Female

DRUGS (5)
  1. ALLEGRA (FEXOFENADINE HYDROCHLORIDE) [Concomitant]
  2. ASTEPRO (AZELASTINE HYDROCHLORIDE) [Concomitant]
  3. DYMISTA [Suspect]
     Active Substance: AZELASTINE HYDROCHLORIDE\FLUTICASONE PROPIONATE
     Indication: RHINITIS ALLERGIC
     Route: 055
     Dates: start: 201404, end: 20150301
  4. SYNTHROID [Concomitant]
     Active Substance: LEVOTHYROXINE SODIUM
  5. FENOFIBRATE (FENOFIBRATE) [Concomitant]
     Active Substance: FENOFIBRATE

REACTIONS (4)
  - Dyspnoea [None]
  - Anxiety [None]
  - Nasal discomfort [None]
  - Scab [None]

NARRATIVE: CASE EVENT DATE: 201405
